FAERS Safety Report 9868821 (Version 2)
Quarter: 2014Q1

REPORT INFORMATION
  Report Type: Spontaneous
  Country: US (occurrence: US)
  Receive Date: 20140204
  Receipt Date: 20140204
  Transmission Date: 20141002
  Serious: Yes (Death, Hospitalization, Other)
  Sender: FDA-Public Use
  Company Number: US-ABBVIE-14P-163-1193788-00

PATIENT
  Age: 49 Year
  Sex: Female

DRUGS (1)
  1. HUMIRA [Suspect]
     Indication: RHEUMATOID ARTHRITIS
     Route: 058

REACTIONS (14)
  - Pyrexia [Fatal]
  - Pain in extremity [Fatal]
  - Abdominal pain [Fatal]
  - Infection [Fatal]
  - Arthritis bacterial [Fatal]
  - Sepsis [Fatal]
  - Pyrexia [Recovered/Resolved]
  - Staphylococcal infection [Unknown]
  - Gallbladder disorder [Unknown]
  - Pneumonia [Unknown]
  - Lymphadenopathy [Unknown]
  - Pulmonary sarcoidosis [Unknown]
  - Joint swelling [Recovered/Resolved]
  - Cough [Recovered/Resolved]
